FAERS Safety Report 7365124-8 (Version None)
Quarter: 2011Q1

REPORT INFORMATION
  Report Type: 
  Country: None (occurrence: None)
  Receive Date: 20110321
  Receipt Date: 20110318
  Transmission Date: 20110831
  Serious: No
  Sender: FDA-Public Use
  Company Number: US-PFIZER INC-2011060509

PATIENT
  Sex: Female
  Weight: 73 kg

DRUGS (4)
  1. EVISTA [Concomitant]
     Dosage: UNK
  2. LIPITOR [Suspect]
     Indication: BLOOD CHOLESTEROL INCREASED
     Dosage: 20 MG, DAILY
     Route: 048
     Dates: start: 19990101
  3. LIPITOR [Suspect]
     Dosage: 40 MG, DAILY
  4. LIPITOR [Suspect]
     Dosage: 80 MG, DAILY

REACTIONS (1)
  - GASTROINTESTINAL DISORDER [None]
